FAERS Safety Report 16137056 (Version 1)
Quarter: 2019Q2

REPORT INFORMATION
  Report Type: Report from Study
  Country: GB (occurrence: GB)
  Receive Date: 20190401
  Receipt Date: 20190401
  Transmission Date: 20190711
  Serious: No
  Sender: FDA-Public Use
  Company Number: GB-ROCHE-2282395

PATIENT
  Sex: Female

DRUGS (1)
  1. OCREVUS [Suspect]
     Active Substance: OCRELIZUMAB
     Indication: RELAPSING-REMITTING MULTIPLE SCLEROSIS
     Route: 065

REACTIONS (5)
  - Throat irritation [Recovered/Resolved]
  - Tachycardia [Recovered/Resolved]
  - Candida infection [Unknown]
  - Fatigue [Recovered/Resolved]
  - Rhinorrhoea [Recovered/Resolved]
